FAERS Safety Report 18556657 (Version 1)
Quarter: 2020Q4

REPORT INFORMATION
  Report Type: Report from Study
  Country: FR (occurrence: FR)
  Receive Date: 20201128
  Receipt Date: 20201128
  Transmission Date: 20210114
  Serious: Yes (Life-Threatening, Hospitalization, Disabling, Other)
  Sender: FDA-Public Use
  Company Number: FR-SHIRE-SPV1-2012-00545

PATIENT
  Age: 10 Year
  Sex: Male

DRUGS (4)
  1. ROCEPHIN [Concomitant]
     Active Substance: CEFTRIAXONE SODIUM
     Indication: PNEUMONIA
  2. ELAPRASE [Suspect]
     Active Substance: IDURSULFASE
     Dosage: 0.5 MILLIGRAM/KILOGRAM, 1/WEEK
     Route: 041
     Dates: start: 20090629, end: 20120417
  3. ELAPRASE [Suspect]
     Active Substance: IDURSULFASE
     Dosage: 0.46 MILLIGRAM/KILOGRAM, 1/WEEK
     Route: 042
     Dates: start: 20100821
  4. ELAPRASE [Suspect]
     Active Substance: IDURSULFASE
     Indication: MUCOPOLYSACCHARIDOSIS II
     Dosage: 0.38 MILLIGRAM/KILOGRAM, 1/WEEK
     Route: 042
     Dates: start: 20110520, end: 20120430

REACTIONS (6)
  - Decreased appetite [Recovered/Resolved]
  - Decreased eye contact [Not Recovered/Not Resolved]
  - Dehydration [Recovered/Resolved]
  - Hypernatraemia [Recovered/Resolved]
  - Cognitive disorder [Not Recovered/Not Resolved]
  - Gait disturbance [Not Recovered/Not Resolved]

NARRATIVE: CASE EVENT DATE: 20120405
